FAERS Safety Report 9134284 (Version 2)
Quarter: 2013Q1

REPORT INFORMATION
  Report Type: Spontaneous
  Country: GB (occurrence: GB)
  Receive Date: 20130304
  Receipt Date: 20130312
  Transmission Date: 20140127
  Serious: Yes (Death)
  Sender: FDA-Public Use
  Company Number: GB-JNJFOC-20130300231

PATIENT
  Sex: Female

DRUGS (3)
  1. DOXORUBICIN [Suspect]
     Indication: OVARIAN CANCER METASTATIC
     Route: 042
  2. DOXORUBICIN [Suspect]
     Indication: OVARIAN CANCER METASTATIC
     Route: 042
  3. AVE1642 [Suspect]
     Indication: OVARIAN CANCER METASTATIC
     Dosage: SLOW INTRAVENOUS INFUSION ON DAY 1 OF EACH 21-DAY CYCLE (Q21)
     Route: 042

REACTIONS (1)
  - Febrile neutropenia [Fatal]
